FAERS Safety Report 5792684-0 (Version None)
Quarter: 2008Q2

REPORT INFORMATION
  Report Type: 
  Country: None (occurrence: None)
  Receive Date: 20080624
  Receipt Date: 20080606
  Transmission Date: 20081010
  Serious: Yes (Hospitalization)
  Sender: FDA-Public Use
  Company Number: 1-16244568

PATIENT
  Age: 75 Year
  Sex: Male

DRUGS (1)
  1. OXCARBAZEPINE [Suspect]
     Indication: CONVULSION
     Dosage: ORAL
     Route: 048

REACTIONS (3)
  - HAEMOLYTIC ANAEMIA [None]
  - MEMORY IMPAIRMENT [None]
  - WHITE BLOOD CELL COUNT INCREASED [None]
